FAERS Safety Report 13549995 (Version 1)
Quarter: 2017Q2

REPORT INFORMATION
  Report Type: Spontaneous
  Country: FR (occurrence: FR)
  Receive Date: 20170516
  Receipt Date: 20170516
  Transmission Date: 20170830
  Serious: Yes (Other)
  Sender: FDA-Public Use
  Company Number: FR-GLAXOSMITHKLINE-FR2017GSK070221

PATIENT
  Age: 3 Year
  Sex: Female
  Weight: 19 kg

DRUGS (2)
  1. ATOVAQUONE + PROGUANIL HYDROCHLORIDE [Suspect]
     Active Substance: ATOVAQUONE\PROGUANIL HYDROCHLORIDE
     Indication: PROPHYLACTIC CHEMOTHERAPY
     Dosage: UNK
  2. ATOVAQUONE + PROGUANIL HYDROCHLORIDE [Suspect]
     Active Substance: ATOVAQUONE\PROGUANIL HYDROCHLORIDE
     Indication: PLASMODIUM FALCIPARUM INFECTION
     Dosage: 250MG/100MG TABLET CRUSHED FOR 3 DAYS
     Route: 048

REACTIONS (5)
  - Vomiting [Unknown]
  - Treatment failure [Unknown]
  - Treatment noncompliance [Unknown]
  - Pathogen resistance [Unknown]
  - Drug resistance [Unknown]
